FAERS Safety Report 4772976-4 (Version None)
Quarter: 2005Q3

REPORT INFORMATION
  Report Type: 
  Country: None (occurrence: None)
  Receive Date: 20050915
  Receipt Date: 20050826
  Transmission Date: 20060218
  Serious: Yes (Death)
  Sender: FDA-Public Use
  Company Number: EWC050343283

PATIENT
  Age: 49 Year
  Sex: Male
  Weight: 80 kg

DRUGS (7)
  1. DULOXETINE HYDROCHLORIDE [Suspect]
     Indication: GENERALISED ANXIETY DISORDER
     Dosage: 60 MG/L DAY
     Dates: start: 20050311
  2. DULOXETINE HYDROCHLORIDE [Suspect]
     Indication: PROPHYLAXIS
     Dosage: 60 MG/L DAY
     Dates: start: 20050311
  3. FOSICOMB [Concomitant]
  4. ZANIDIP (LERCANIDIPINE HYDROCHLORIDE) [Concomitant]
  5. NEXIUM [Concomitant]
  6. FERROBET (FERROUS FUMARATE) [Concomitant]
  7. ALLOPURINOL [Concomitant]

REACTIONS (2)
  - COMPLETED SUICIDE [None]
  - GUN SHOT WOUND [None]
